FAERS Safety Report 17669271 (Version 1)
Quarter: 2020Q2

REPORT INFORMATION
  Report Type: Spontaneous
  Country: CN (occurrence: CN)
  Receive Date: 20200415
  Receipt Date: 20200415
  Transmission Date: 20200713
  Serious: Yes (Death)
  Sender: FDA-Public Use
  Company Number: CN-ROCHE-2580591

PATIENT
  Age: 61 Year
  Sex: Male
  Weight: 80 kg

DRUGS (17)
  1. AVASTIN [Suspect]
     Active Substance: BEVACIZUMAB
     Dosage: LAST FOR 3 MONTHS
     Route: 065
     Dates: start: 20180101
  2. CALCIUM FOLINATE [Concomitant]
     Active Substance: LEUCOVORIN CALCIUM
     Dosage: FOLFIRI REGIMEN 6 CYCLES
     Route: 065
     Dates: start: 20180322
  3. FLUOROURACIL. [Concomitant]
     Active Substance: FLUOROURACIL
     Dosage: FOLFIRI REGIMEN 6 CYCLES
     Route: 065
     Dates: start: 20180322
  4. XELODA [Suspect]
     Active Substance: CAPECITABINE
     Dosage: LAST FOR 3 MONTHS
     Route: 065
     Dates: start: 20180101
  5. AVASTIN [Suspect]
     Active Substance: BEVACIZUMAB
     Dosage: 6 CYCLES
     Route: 065
     Dates: start: 20180322
  6. AVASTIN [Suspect]
     Active Substance: BEVACIZUMAB
     Route: 065
     Dates: start: 20160605, end: 20161010
  7. CALCIUM FOLINATE [Concomitant]
     Active Substance: LEUCOVORIN CALCIUM
     Indication: ADENOCARCINOMA
     Dosage: FOLFIRI REGIMEN
     Route: 065
     Dates: start: 20160605, end: 20161010
  8. FLUOROURACIL. [Concomitant]
     Active Substance: FLUOROURACIL
     Dosage: FOLFIRI REGIMEN 4 CYCLES
     Route: 065
     Dates: start: 20180910
  9. XELODA [Suspect]
     Active Substance: CAPECITABINE
     Indication: ADENOCARCINOMA
     Dosage: XELOX REGIMEN 8 CYCLE, 19 CYCLES FROM 05-MAR-2015 TO 06/MAY/2016, 12 CYCLES FROM 24/OCT/2016 TO FEB/
     Route: 065
     Dates: start: 20140823, end: 20150215
  10. OXALIPLATIN. [Concomitant]
     Active Substance: OXALIPLATIN
     Indication: ADENOCARCINOMA
     Dosage: XELOX REGIMEN 8 CYCLE
     Route: 065
     Dates: start: 20140823, end: 20150215
  11. AVASTIN [Suspect]
     Active Substance: BEVACIZUMAB
     Indication: ADENOCARCINOMA
     Dosage: XELOX REGIMEN 8 CYCLE, 19 CYCLES FROM 05-MAR-2015 TO 06/MAY/2016, 12 CYCLES FROM 24/OCT/2016 TO FEB/
     Route: 065
     Dates: start: 20140823, end: 20150215
  12. CALCIUM FOLINATE [Concomitant]
     Active Substance: LEUCOVORIN CALCIUM
     Dosage: FOLFIRI REGIMEN 4 CYCLES
     Route: 065
     Dates: start: 20180910
  13. FLUOROURACIL. [Concomitant]
     Active Substance: FLUOROURACIL
     Indication: ADENOCARCINOMA
     Dosage: FOLFIRI REGIMEN
     Route: 065
     Dates: start: 20160605, end: 20161010
  14. IRINOTECAN [Concomitant]
     Active Substance: IRINOTECAN
     Indication: ADENOCARCINOMA
     Dosage: FOLFIRI REGIMEN
     Route: 065
     Dates: start: 20160605, end: 20161010
  15. IRINOTECAN [Concomitant]
     Active Substance: IRINOTECAN
     Dosage: FOLFIRI REGIMEN 6 CYCLES
     Route: 065
     Dates: start: 20180322
  16. IRINOTECAN [Concomitant]
     Active Substance: IRINOTECAN
     Dosage: FOLFIRI REGIMEN 4 CYCLES
     Route: 065
     Dates: start: 20180910
  17. CETUXIMAB. [Concomitant]
     Active Substance: CETUXIMAB
     Indication: ADENOCARCINOMA
     Route: 065
     Dates: start: 20190101

REACTIONS (1)
  - Pneumonia [Fatal]
